FAERS Safety Report 19968570 (Version 1)
Quarter: 2021Q4

REPORT INFORMATION
  Report Type: Spontaneous
  Country: US (occurrence: US)
  Receive Date: 20211015
  Receipt Date: 20211015
  Transmission Date: 20220304
  Serious: No
  Sender: FDA-Public Use
  Company Number: None

PATIENT
  Age: 53 Year
  Sex: Female

DRUGS (1)
  1. LORBRENA [Suspect]
     Active Substance: LORLATINIB
     Route: 048
     Dates: start: 202108

REACTIONS (2)
  - Central nervous system lesion [None]
  - Intentional dose omission [None]

NARRATIVE: CASE EVENT DATE: 20211007
